FAERS Safety Report 5188497-3 (Version None)
Quarter: 2006Q4

REPORT INFORMATION
  Report Type: 
  Country: None (occurrence: None)
  Receive Date: 20061214
  Receipt Date: 20061204
  Transmission Date: 20070319
  Serious: Yes (Hospitalization, Disabling)
  Sender: FDA-Public Use
  Company Number: 2006PV026301

PATIENT
  Age: 62 Year
  Sex: Female
  Weight: 71.6683 kg

DRUGS (4)
  1. BYETTA [Suspect]
     Indication: DIABETES MELLITUS NON-INSULIN-DEPENDENT
     Dosage: SEE IMAGE, SC
     Route: 058
     Dates: start: 20050101, end: 20050101
  2. BYETTA [Suspect]
     Indication: DIABETES MELLITUS NON-INSULIN-DEPENDENT
     Dosage: SEE IMAGE, SC
     Route: 058
     Dates: start: 20050101, end: 20060101
  3. BYETTA [Suspect]
     Indication: DIABETES MELLITUS NON-INSULIN-DEPENDENT
     Dosage: SEE IMAGE, SC
     Route: 058
     Dates: start: 20061129
  4. COUMADIN [Concomitant]

REACTIONS (5)
  - AORTIC VALVE DISEASE [None]
  - AORTIC VALVE REPAIR [None]
  - BLINDNESS UNILATERAL [None]
  - INTERNATIONAL NORMALISED RATIO INCREASED [None]
  - RETINAL VASCULAR THROMBOSIS [None]
